FAERS Safety Report 20088997 (Version 2)
Quarter: 2021Q4

REPORT INFORMATION
  Report Type: Other
  Country: JP (occurrence: JP)
  Receive Date: 20211119
  Receipt Date: 20211216
  Transmission Date: 20220303
  Serious: Yes (Hospitalization, Other)
  Sender: FDA-Public Use
  Company Number: JP-CHUGAI-2021026908

PATIENT
  Age: 70 Year
  Sex: Male

DRUGS (2)
  1. TECENTRIQ [Suspect]
     Active Substance: ATEZOLIZUMAB
     Indication: Small cell lung cancer
     Route: 041
  2. ETOPOSIDE [Concomitant]
     Active Substance: ETOPOSIDE
     Indication: Small cell lung cancer
     Route: 065

REACTIONS (6)
  - Type 1 diabetes mellitus [Unknown]
  - Growth hormone deficiency [Unknown]
  - Silent thyroiditis [Unknown]
  - Hypercalcaemia [Unknown]
  - Hypothyroidism [Unknown]
  - Hypopituitarism [Unknown]
